FAERS Safety Report 14331979 (Version 3)
Quarter: 2018Q1

REPORT INFORMATION
  Report Type: Spontaneous
  Country: PL (occurrence: PL)
  Receive Date: 20171228
  Receipt Date: 20180201
  Transmission Date: 20180509
  Serious: Yes (Hospitalization, Other)
  Sender: FDA-Public Use
  Company Number: PL-ASTRAZENECA-2017SF31266

PATIENT
  Age: 23 Year
  Sex: Female

DRUGS (10)
  1. CLARITHROMYCIN. [Suspect]
     Active Substance: CLARITHROMYCIN
     Indication: MENINGITIS VIRAL
     Dosage: UNK
     Route: 065
  2. MEROPENEM. [Concomitant]
     Active Substance: MEROPENEM
     Indication: BACTERIAL INFECTION
  3. VANCOMYCIN [Concomitant]
     Active Substance: VANCOMYCIN
     Indication: BACTERIAL INFECTION
  4. QUETIAPINE FUMARATE. [Suspect]
     Active Substance: QUETIAPINE FUMARATE
     Indication: PRODUCT USED FOR UNKNOWN INDICATION
     Dosage: UNK
     Route: 048
  5. LINEZOLID. [Concomitant]
     Active Substance: LINEZOLID
     Indication: BACTERIAL INFECTION
  6. RIFAMPICIN [Concomitant]
     Active Substance: RIFAMPIN
     Indication: BACTERIAL INFECTION
  7. CEFTRIAXONE. [Concomitant]
     Active Substance: CEFTRIAXONE
     Indication: BACTERIAL INFECTION
  8. TETRABENAZINE. [Concomitant]
     Active Substance: TETRABENAZINE
     Indication: BACTERIAL INFECTION
  9. BACLOFEN. [Concomitant]
     Active Substance: BACLOFEN
     Indication: BACTERIAL INFECTION
  10. ACYCLOVIR. [Concomitant]
     Active Substance: ACYCLOVIR
     Indication: VIRAL INFECTION

REACTIONS (24)
  - Sedation [Recovering/Resolving]
  - Disease progression [Recovering/Resolving]
  - Hyperthermia [Recovering/Resolving]
  - Acute respiratory failure [Recovering/Resolving]
  - Encephalitis autoimmune [Recovering/Resolving]
  - Depressed mood [Recovering/Resolving]
  - Meningitis [Recovering/Resolving]
  - Drug ineffective [Unknown]
  - Encephalitis [Recovering/Resolving]
  - Insomnia [Recovering/Resolving]
  - Confusional state [Recovering/Resolving]
  - Tremor [Recovering/Resolving]
  - Anxiety [Recovering/Resolving]
  - Endocarditis [Recovering/Resolving]
  - Unresponsive to stimuli [Recovering/Resolving]
  - Arrhythmia [Recovering/Resolving]
  - Loss of consciousness [Recovering/Resolving]
  - Salivary hypersecretion [Recovering/Resolving]
  - Sepsis [Recovering/Resolving]
  - Leukopenia [Recovering/Resolving]
  - Psychomotor hyperactivity [Recovering/Resolving]
  - Malignant sweat gland neoplasm [Recovering/Resolving]
  - Tachyarrhythmia [Recovering/Resolving]
  - Respiratory tract infection [Recovering/Resolving]
